FAERS Safety Report 25643956 (Version 1)
Quarter: 2025Q3

REPORT INFORMATION
  Report Type: Spontaneous
  Country: AU (occurrence: AU)
  Receive Date: 20250805
  Receipt Date: 20250805
  Transmission Date: 20251020
  Serious: Yes (Other)
  Sender: MYLAN
  Company Number: AU-MYLANLABS-2025M1065302

PATIENT
  Sex: Female

DRUGS (16)
  1. LYRICA [Suspect]
     Active Substance: PREGABALIN
     Indication: Neuralgia
     Dosage: 75 MILLIGRAM, QD (3 WEEKS AT 1 DOSE/DAY)
  2. LYRICA [Suspect]
     Active Substance: PREGABALIN
     Dosage: 75 MILLIGRAM, QD (3 WEEKS AT 1 DOSE/DAY)
  3. LYRICA [Suspect]
     Active Substance: PREGABALIN
     Dosage: 75 MILLIGRAM, QD (3 WEEKS AT 1 DOSE/DAY)
     Route: 065
  4. LYRICA [Suspect]
     Active Substance: PREGABALIN
     Dosage: 75 MILLIGRAM, QD (3 WEEKS AT 1 DOSE/DAY)
     Route: 065
  5. LYRICA [Suspect]
     Active Substance: PREGABALIN
     Dosage: 135 MILLIGRAM, QD (1 DOSE TO 2 DOSES/DAY)
  6. LYRICA [Suspect]
     Active Substance: PREGABALIN
     Dosage: 135 MILLIGRAM, QD (1 DOSE TO 2 DOSES/DAY)
  7. LYRICA [Suspect]
     Active Substance: PREGABALIN
     Dosage: 135 MILLIGRAM, QD (1 DOSE TO 2 DOSES/DAY)
     Route: 065
  8. LYRICA [Suspect]
     Active Substance: PREGABALIN
     Dosage: 135 MILLIGRAM, QD (1 DOSE TO 2 DOSES/DAY)
     Route: 065
  9. Celaxib [Concomitant]
  10. Celaxib [Concomitant]
     Route: 065
  11. Celaxib [Concomitant]
     Route: 065
  12. Celaxib [Concomitant]
  13. ACETAMINOPHEN [Concomitant]
     Active Substance: ACETAMINOPHEN
  14. ACETAMINOPHEN [Concomitant]
     Active Substance: ACETAMINOPHEN
     Route: 065
  15. ACETAMINOPHEN [Concomitant]
     Active Substance: ACETAMINOPHEN
     Route: 065
  16. ACETAMINOPHEN [Concomitant]
     Active Substance: ACETAMINOPHEN

REACTIONS (9)
  - Suicidal ideation [Unknown]
  - Suicide attempt [Unknown]
  - Drug dependence [Unknown]
  - Confusional state [Unknown]
  - Amnesia [Unknown]
  - Cognitive disorder [Unknown]
  - Vision blurred [Unknown]
  - Feeling abnormal [Unknown]
  - Drug effect less than expected [Unknown]
